FAERS Safety Report 20089489 (Version 1)
Quarter: 2021Q4

REPORT INFORMATION
  Report Type: Spontaneous
  Country: NG (occurrence: None)
  Receive Date: 20211119
  Receipt Date: 20211119
  Transmission Date: 20220303
  Serious: Yes (Death, Other)
  Sender: FDA-Public Use
  Company Number: NG-ROCHE-2956011

PATIENT
  Age: 21 Year
  Sex: Female

DRUGS (1)
  1. HERCEPTIN [Suspect]
     Active Substance: TRASTUZUMAB
     Indication: HER2 positive breast cancer
     Dosage: 5 CYCLES
     Route: 065

REACTIONS (4)
  - Death [Fatal]
  - Metastases to central nervous system [Unknown]
  - Seizure [Unknown]
  - Visual impairment [Unknown]
